FAERS Safety Report 23701318 (Version 1)
Quarter: 2024Q2

REPORT INFORMATION
  Report Type: Spontaneous
  Country: US (occurrence: None)
  Receive Date: 20240402
  Receipt Date: 20240402
  Transmission Date: 20240716
  Serious: No
  Sender: FDA-Public Use
  Company Number: None

PATIENT
  Age: 63 Year
  Sex: Female

DRUGS (10)
  1. ENBREL [Suspect]
     Active Substance: ETANERCEPT
     Indication: Rheumatoid arthritis
     Dosage: OTHER QUANTITY : INJECT 1 PEN;?FREQUENCY : DAILY;?
     Route: 058
     Dates: start: 20220406
  2. ALPRAZOLAM [Concomitant]
     Active Substance: ALPRAZOLAM
  3. AMLODIPINE [Concomitant]
     Active Substance: AMLODIPINE BESYLATE
  4. BANOPHEN [Concomitant]
     Active Substance: DIPHENHYDRAMINE HYDROCHLORIDE
  5. BRILINTA [Concomitant]
     Active Substance: TICAGRELOR
  6. CHLORHEX GLU SOL [Concomitant]
  7. DICYCLOMINE [Concomitant]
  8. ENBREL SRCLK [Concomitant]
  9. GABAPENTIN [Concomitant]
     Active Substance: GABAPENTIN
  10. HYDROCORTISO CRE [Concomitant]

REACTIONS (1)
  - Injection site rash [None]

NARRATIVE: CASE EVENT DATE: 20240315
